FAERS Safety Report 8509667 (Version 4)
Quarter: 2013Q1

REPORT INFORMATION
  Report Type: Spontaneous
  Country: BR (occurrence: BR)
  Receive Date: 20120413
  Receipt Date: 20130301
  Transmission Date: 20140127
  Serious: Yes (Other)
  Sender: FDA-Public Use
  Company Number: BR-PFIZER INC-2012089077

PATIENT
  Sex: Female
  Weight: 60 kg

DRUGS (4)
  1. NEURONTIN [Suspect]
     Indication: NEURITIS CRANIAL
     Dosage: 300 MG, 2X/DAY
     Route: 048
     Dates: start: 200908, end: 201008
  2. NEURONTIN [Suspect]
     Dosage: UNK
     Route: 048
     Dates: start: 20120322, end: 20120323
  3. NEURONTIN [Suspect]
     Dosage: 300 MG, 3X/DAY
     Route: 048
     Dates: start: 20120324
  4. LEVOXYL [Concomitant]
     Indication: THYROID DISORDER
     Dosage: UNK

REACTIONS (3)
  - Activities of daily living impaired [Not Recovered/Not Resolved]
  - Drug ineffective [Not Recovered/Not Resolved]
  - Muscle twitching [Unknown]
